FAERS Safety Report 10606780 (Version 1)
Quarter: 2014Q4

REPORT INFORMATION
  Report Type: Spontaneous
  Country: US (occurrence: None)
  Receive Date: 20141124
  Receipt Date: 20141124
  Transmission Date: 20150529
  Serious: Yes (Hospitalization)
  Sender: FDA-Public Use
  Company Number: None

PATIENT
  Age: 66 Year
  Sex: Female
  Weight: 73.48 kg

DRUGS (3)
  1. LEVOTHYROXINE [Concomitant]
     Active Substance: LEVOTHYROXINE
  2. EXPAREL [Suspect]
     Active Substance: BUPIVACAINE
     Indication: PROCEDURAL PAIN
     Dosage: 20ML, ONCE - POST OP., SUBCUTANEOUS
     Route: 058
     Dates: start: 20130814
  3. GLYBURIDE. [Concomitant]
     Active Substance: GLYBURIDE

REACTIONS (5)
  - Nausea [None]
  - Haematochezia [None]
  - Clostridium difficile colitis [None]
  - Wound dehiscence [None]
  - Vomiting [None]

NARRATIVE: CASE EVENT DATE: 20131008
